FAERS Safety Report 9628818 (Version 2)
Quarter: 2013Q4

REPORT INFORMATION
  Report Type: Spontaneous
  Country: PL (occurrence: PL)
  Receive Date: 20131017
  Receipt Date: 20131113
  Transmission Date: 20140711
  Serious: Yes (Death, Life-Threatening, Hospitalization)
  Sender: FDA-Public Use
  Company Number: PL-ELI_LILLY_AND_COMPANY-PL201310003186

PATIENT
  Age: 63 Year
  Sex: 0

DRUGS (2)
  1. OLANZAPINE [Suspect]
     Indication: SCHIZOPHRENIA, PARANOID TYPE
     Dosage: 10 MG, QD
  2. OLANZAPINE [Suspect]
     Dosage: 15 MG, QD

REACTIONS (5)
  - Renal failure acute [Fatal]
  - Hyperpyrexia [Fatal]
  - Respiratory failure [Not Recovered/Not Resolved]
  - Neuroleptic malignant syndrome [Not Recovered/Not Resolved]
  - Loss of consciousness [Not Recovered/Not Resolved]
